FAERS Safety Report 13528134 (Version 1)
Quarter: 2017Q2

REPORT INFORMATION
  Report Type: Not Available
  Country: SG (occurrence: SG)
  Receive Date: 20170509
  Receipt Date: 20170509
  Transmission Date: 20170830
  Serious: Yes (Life-Threatening)
  Sender: FDA-Public Use
  Company Number: SG-ANIPHARMA-2017-SG-000002

PATIENT
  Age: 52 Year
  Sex: Male

DRUGS (1)
  1. AMITRIPTYLINE (NON-SPECIFIC) [Suspect]
     Active Substance: AMITRIPTYLINE
     Dosage: 500 MG
     Route: 048

REACTIONS (4)
  - Intentional overdose [Recovered/Resolved]
  - Cardiac arrest [Recovered/Resolved]
  - Areflexia [Recovered/Resolved]
  - Suicide attempt [Recovered/Resolved]
